FAERS Safety Report 6043581-7 (Version None)
Quarter: 2009Q1

REPORT INFORMATION
  Report Type: 
  Country: None (occurrence: None)
  Receive Date: 20090115
  Receipt Date: 20090115
  Transmission Date: 20090719
  Serious: Yes (Hospitalization, Disabling)
  Sender: FDA-Public Use
  Company Number: None

PATIENT
  Age: 22 Year
  Sex: Female
  Weight: 81.1939 kg

DRUGS (1)
  1. YASMIN [Suspect]
     Indication: CONTRACEPTION
     Dosage: DAILY
     Dates: start: 20080620, end: 20090105

REACTIONS (3)
  - LUNG INJURY [None]
  - PAIN [None]
  - PULMONARY THROMBOSIS [None]
